FAERS Safety Report 5807563-X (Version None)
Quarter: 2008Q3

REPORT INFORMATION
  Report Type: 
  Country: None (occurrence: None)
  Receive Date: 20080711
  Receipt Date: 20011015
  Transmission Date: 20090109
  Serious: Yes (Life-Threatening, Other)
  Sender: FDA-Public Use
  Company Number: CO-BAXTER-2007BH008916

PATIENT

DRUGS (1)
  1. LACTATED RINGER'S [Suspect]
     Indication: DEHYDRATION
     Dosage: DOSE UNIT:UNKNOWN
     Route: 042

REACTIONS (1)
  - ANAPHYLACTIC SHOCK [None]
